FAERS Safety Report 24901502 (Version 1)
Quarter: 2025Q1

REPORT INFORMATION
  Report Type: Spontaneous
  Country: US (occurrence: US)
  Receive Date: 20250129
  Receipt Date: 20250129
  Transmission Date: 20250409
  Serious: No
  Sender: ALEXION PHARMACEUTICALS
  Company Number: US-AstraZeneca-CH-00789827A

PATIENT

DRUGS (1)
  1. SYMBICORT AEROSPHERE [Suspect]
     Active Substance: BUDESONIDE\FORMOTEROL FUMARATE
     Route: 065

REACTIONS (6)
  - Swollen tongue [Unknown]
  - Throat irritation [Unknown]
  - Pharyngeal swelling [Unknown]
  - Laryngitis [Unknown]
  - Product use issue [Unknown]
  - Adverse event [Unknown]
